FAERS Safety Report 5616436-7 (Version None)
Quarter: 2008Q1

REPORT INFORMATION
  Report Type: 
  Country: None (occurrence: None)
  Receive Date: 20080207
  Receipt Date: 20080201
  Transmission Date: 20080703
  Serious: Yes (Hospitalization)
  Sender: FDA-Public Use
  Company Number: GB-JNJFOC-20080200442

PATIENT
  Sex: Female
  Weight: 2.84 kg

DRUGS (3)
  1. CONCERTA [Suspect]
     Indication: DRUG EXPOSURE DURING PREGNANCY
     Route: 064
  2. ORAMORPH SR [Concomitant]
     Indication: DRUG EXPOSURE DURING PREGNANCY
  3. CYMBALTA [Concomitant]
     Indication: DRUG EXPOSURE DURING PREGNANCY

REACTIONS (1)
  - PREMATURE BABY [None]
